APPROVED DRUG PRODUCT: NADOLOL
Active Ingredient: NADOLOL
Strength: 80MG
Dosage Form/Route: TABLET;ORAL
Application: A212856 | Product #003 | TE Code: AB
Applicant: RK PHARMA INC
Approved: Sep 13, 2019 | RLD: No | RS: No | Type: RX